FAERS Safety Report 15403614 (Version 1)
Quarter: 2018Q3

REPORT INFORMATION
  Report Type: Report from Study
  Country: IN (occurrence: IN)
  Receive Date: 20180919
  Receipt Date: 20180919
  Transmission Date: 20181010
  Serious: Yes (Hospitalization)
  Sender: FDA-Public Use
  Company Number: IN-ELI_LILLY_AND_COMPANY-IN201809006027

PATIENT
  Age: 65 Year
  Sex: Male

DRUGS (1)
  1. INSULIN, LISPRO [Suspect]
     Active Substance: INSULIN LISPRO
     Indication: DIABETES MELLITUS
     Dosage: UNK, BID
     Route: 058
     Dates: start: 20180606

REACTIONS (5)
  - Hyperhidrosis [Recovered/Resolved]
  - Feeling cold [Recovered/Resolved]
  - Hypotension [Recovered/Resolved]
  - Blood glucose decreased [Recovered/Resolved]
  - Injection site swelling [Not Recovered/Not Resolved]
